FAERS Safety Report 6647735-8 (Version None)
Quarter: 2010Q1

REPORT INFORMATION
  Report Type: 
  Country: None (occurrence: None)
  Receive Date: 20100317
  Receipt Date: 20100304
  Transmission Date: 20100710
  Serious: Yes (Death)
  Sender: FDA-Public Use
  Company Number: A-CH2010-33908

PATIENT
  Age: 50 Year
  Sex: Female
  Weight: 57 kg

DRUGS (8)
  1. TRACLEER [Suspect]
     Indication: PULMONARY HYPERTENSION
     Dosage: 62.5 MG, BID, ORAL ; 125 MG, BID, ORAL
     Route: 048
     Dates: start: 20051123, end: 20051220
  2. TRACLEER [Suspect]
     Indication: PULMONARY HYPERTENSION
     Dosage: 62.5 MG, BID, ORAL ; 125 MG, BID, ORAL
     Route: 048
     Dates: start: 20051221, end: 20100205
  3. ACENOCOUMAROL (ACENOCOUMAROL) [Concomitant]
  4. MODURETIC 5-50 [Concomitant]
  5. NORTRIPTYLINE HCL [Concomitant]
  6. BROMAZEPAM (BROMAZEPAM) [Concomitant]
  7. ACETAMINOPHEN W/ CODEINE [Concomitant]
  8. SELENIUM (SELENIUM) [Concomitant]

REACTIONS (1)
  - OFF LABEL USE [None]
